FAERS Safety Report 18583963 (Version 1)
Quarter: 2020Q4

REPORT INFORMATION
  Report Type: Spontaneous
  Country: US (occurrence: US)
  Receive Date: 20201207
  Receipt Date: 20201207
  Transmission Date: 20210114
  Serious: No
  Sender: FDA-Public Use
  Company Number: US-TEVA-2020-US-1856401

PATIENT
  Sex: Female

DRUGS (1)
  1. PROGESTERONE TEVA [Suspect]
     Active Substance: PROGESTERONE
     Indication: HORMONE THERAPY
     Route: 065
     Dates: start: 2020

REACTIONS (1)
  - Drug ineffective [Unknown]
